FAERS Safety Report 10209601 (Version 1)
Quarter: 2014Q2

REPORT INFORMATION
  Report Type: Spontaneous
  Country: PH (occurrence: PH)
  Receive Date: 20140602
  Receipt Date: 20140602
  Transmission Date: 20141212
  Serious: Yes (Death)
  Sender: FDA-Public Use
  Company Number: PH-MERCK-1405PHL015080

PATIENT
  Sex: Male

DRUGS (1)
  1. JANUVIA [Suspect]
     Dosage: 50 MG, ONCE DOSAGE 1 TABLET

REACTIONS (1)
  - Pancreatitis [Fatal]
